APPROVED DRUG PRODUCT: NEXTSTELLIS
Active Ingredient: DROSPIRENONE; ESTETROL
Strength: 3MG;14.2MG
Dosage Form/Route: TABLET;ORAL
Application: N214154 | Product #001
Applicant: MAYNE PHARMA LLC
Approved: Apr 15, 2021 | RLD: Yes | RS: Yes | Type: RX

PATENTS:
Patent 12458649 | Expires: Oct 1, 2043
Patent 12233074 | Expires: Feb 9, 2043
Patent 12427114 | Expires: Jun 17, 2036
Patent 7732430 | Expires: Jan 15, 2028
Patent 11957694 | Expires: Jun 17, 2036
Patent 11793760 | Expires: Jun 17, 2036
Patent 11964055 | Expires: Jun 17, 2036

EXCLUSIVITY:
Code: NCE | Date: Apr 15, 2026